FAERS Safety Report 19457077 (Version 1)
Quarter: 2021Q2

REPORT INFORMATION
  Report Type: Report from Study
  Country: GB (occurrence: GB)
  Receive Date: 20210624
  Receipt Date: 20210624
  Transmission Date: 20210717
  Serious: Yes (Other)
  Sender: FDA-Public Use
  Company Number: NVSC2020GB288083

PATIENT
  Sex: Female

DRUGS (1)
  1. FINGOLIMOD. [Suspect]
     Active Substance: FINGOLIMOD
     Indication: MULTIPLE SCLEROSIS
     Dosage: 0.5 MG, QD
     Route: 048
     Dates: start: 20200921

REACTIONS (6)
  - Hypoaesthesia [Unknown]
  - Optic neuritis [Unknown]
  - Lymphocyte count decreased [Unknown]
  - Diplopia [Unknown]
  - Neutrophil count decreased [Unknown]
  - Urticaria [Unknown]
